FAERS Safety Report 25126007 (Version 1)
Quarter: 2025Q1

REPORT INFORMATION
  Report Type: Spontaneous
  Country: JP (occurrence: JP)
  Receive Date: 20250326
  Receipt Date: 20250326
  Transmission Date: 20250409
  Serious: Yes (Death, Hospitalization, Other)
  Sender: MERCK SHARP & DOHME LLC
  Company Number: JP-009507513-2266731

PATIENT
  Age: 82 Year
  Sex: Female

DRUGS (8)
  1. PEMBROLIZUMAB [Suspect]
     Active Substance: PEMBROLIZUMAB
     Indication: Langerhans cell sarcoma
  2. SIMVASTATIN [Concomitant]
     Active Substance: SIMVASTATIN
  3. ICOSAPENT ETHYL [Concomitant]
     Active Substance: ICOSAPENT ETHYL
  4. BETAHISTINE MESILATE [Concomitant]
     Active Substance: BETAHISTINE MESILATE
  5. LIMAPROST [Concomitant]
     Active Substance: LIMAPROST
  6. CANDESARTAN CILEXETIL [Concomitant]
     Active Substance: CANDESARTAN CILEXETIL
  7. AZELASTINE HYDROCHLORIDE [Concomitant]
     Active Substance: AZELASTINE HYDROCHLORIDE
  8. glycyrrhizic acidammonium/ glycine/ DL-methionine [Concomitant]

REACTIONS (4)
  - Chronic obstructive pulmonary disease [Fatal]
  - Immune thrombocytopenia [Recovered/Resolved]
  - Pneumonia [Fatal]
  - Product use in unapproved indication [Unknown]
